FAERS Safety Report 18152621 (Version 1)
Quarter: 2020Q3

REPORT INFORMATION
  Report Type: Spontaneous
  Country: CN (occurrence: CN)
  Receive Date: 20200814
  Receipt Date: 20200814
  Transmission Date: 20201103
  Serious: Yes (Other)
  Sender: FDA-Public Use
  Company Number: CN-BAXTER-2020BAX016398

PATIENT
  Age: 1 Year
  Sex: Male
  Weight: 9 kg

DRUGS (5)
  1. 0.9% SODIUM CHLORIDE INJECTION [Suspect]
     Active Substance: SODIUM CHLORIDE
     Dosage: ENDOXAN 124MG + 0.9% SODIUM CHLORIDE INJECTION 100ML, CHEMOTHERAPY RETREATMENT
     Route: 041
     Dates: start: 20200705, end: 20200705
  2. VINCRISTINE SULFATE. [Suspect]
     Active Substance: VINCRISTINE SULFATE
     Indication: TESTICULAR MALIGNANT TERATOMA
     Dosage: DOSAGE FORM ? LYOPHILIZED POWDER
     Route: 042
     Dates: start: 20200705, end: 20200705
  3. 0.9% SODIUM CHLORIDE INJECTION [Suspect]
     Active Substance: SODIUM CHLORIDE
     Indication: MEDICATION DILUTION
     Dosage: ENDOXAN + 0.9% SODIUM CHLORIDE
     Route: 041
  4. ENDOXAN [Suspect]
     Active Substance: CYCLOPHOSPHAMIDE
     Dosage: ENDOXAN + 0.9% SODIUM CHLORIDE 100ML, DOSAGE FORM ? LYOPHILIZED POWDER, CHEMOTHERAPY RETREATMENT
     Route: 041
     Dates: start: 20200705, end: 20200705
  5. ENDOXAN [Suspect]
     Active Substance: CYCLOPHOSPHAMIDE
     Indication: TESTICULAR MALIGNANT TERATOMA
     Dosage: ENDOXAN + 0.9 % SODIUM CHLORIDE, DOSAGE FORM ? LYOPHILIZED POWDER
     Route: 041

REACTIONS (1)
  - Platelet count decreased [Recovering/Resolving]

NARRATIVE: CASE EVENT DATE: 20200706
